FAERS Safety Report 19979559 (Version 1)
Quarter: 2021Q4

REPORT INFORMATION
  Report Type: Spontaneous
  Country: US (occurrence: US)
  Receive Date: 20211020
  Receipt Date: 20211020
  Transmission Date: 20220303
  Serious: Yes (Other)
  Sender: FDA-Public Use
  Company Number: US-BAXTER-2021BAX032573

PATIENT
  Age: 14 Year
  Sex: Male

DRUGS (16)
  1. HALOPERIDOL LACTATE [Suspect]
     Active Substance: HALOPERIDOL LACTATE
     Indication: Acute psychosis
     Dosage: ON 3RD DAY
     Route: 030
  2. HALOPERIDOL LACTATE [Suspect]
     Active Substance: HALOPERIDOL LACTATE
     Dosage: ON 5TH DAY
     Route: 030
  3. HALOPERIDOL LACTATE [Suspect]
     Active Substance: HALOPERIDOL LACTATE
     Dosage: ON 6TH DAY
     Route: 030
  4. RISPERIDONE [Concomitant]
     Active Substance: RISPERIDONE
     Indication: Acute psychosis
     Dosage: ON DAY 2
     Route: 048
  5. RISPERIDONE [Concomitant]
     Active Substance: RISPERIDONE
     Dosage: ON DAY 4
     Route: 048
  6. RISPERIDONE [Concomitant]
     Active Substance: RISPERIDONE
     Dosage: ON DAY 5
     Route: 048
  7. RISPERIDONE [Concomitant]
     Active Substance: RISPERIDONE
     Dosage: ON DAY 6
     Route: 048
  8. LORAZEPAM [Concomitant]
     Active Substance: LORAZEPAM
     Indication: Acute psychosis
     Dosage: ON DAY 1
     Route: 030
  9. LORAZEPAM [Concomitant]
     Active Substance: LORAZEPAM
     Dosage: ON DAY 2
     Route: 030
  10. LORAZEPAM [Concomitant]
     Active Substance: LORAZEPAM
     Dosage: ON DAY 3
     Route: 030
  11. LORAZEPAM [Concomitant]
     Active Substance: LORAZEPAM
     Dosage: ON DAY 4
     Route: 030
  12. LORAZEPAM [Concomitant]
     Active Substance: LORAZEPAM
     Dosage: ON DAY 5
     Route: 030
  13. LORAZEPAM [Concomitant]
     Active Substance: LORAZEPAM
     Dosage: ON DAY 6
     Route: 030
  14. DIPHENHYDRAMINE [Concomitant]
     Active Substance: DIPHENHYDRAMINE
     Indication: Acute psychosis
     Dosage: ON DAY 3
     Route: 030
  15. DIPHENHYDRAMINE [Concomitant]
     Active Substance: DIPHENHYDRAMINE
     Dosage: ON DAY 5
     Route: 030
  16. DIPHENHYDRAMINE [Concomitant]
     Active Substance: DIPHENHYDRAMINE
     Dosage: ON DAY 6
     Route: 030

REACTIONS (1)
  - Angioedema [Recovered/Resolved]
